FAERS Safety Report 14559924 (Version 1)
Quarter: 2018Q1

REPORT INFORMATION
  Report Type: Spontaneous
  Country: IL (occurrence: IL)
  Receive Date: 20180221
  Receipt Date: 20180221
  Transmission Date: 20180509
  Serious: Yes (Other)
  Sender: FDA-Public Use
  Company Number: IL-GUERBET-IL-20180001

PATIENT
  Sex: Female
  Weight: 70 kg

DRUGS (4)
  1. ETOPAN [Concomitant]
     Active Substance: ETODOLAC
     Indication: INTERVERTEBRAL DISC PROTRUSION
     Route: 065
     Dates: start: 20180116
  2. OMEPRADEX [Concomitant]
     Active Substance: OMEPRAZOLE
     Indication: GASTROOESOPHAGEAL REFLUX DISEASE
  3. DOTAREM [Suspect]
     Active Substance: GADOTERATE MEGLUMINE
     Indication: NUCLEAR MAGNETIC RESONANCE IMAGING
     Route: 065
     Dates: start: 20180123, end: 20180123
  4. OMEPRADEX [Concomitant]
     Active Substance: OMEPRAZOLE
     Indication: DYSPEPSIA
     Route: 065
     Dates: start: 20180116

REACTIONS (20)
  - Headache [Recovering/Resolving]
  - Paraesthesia [Recovering/Resolving]
  - Pruritus [Recovering/Resolving]
  - Erythema [Recovering/Resolving]
  - Gastrointestinal pain [Recovering/Resolving]
  - Chest discomfort [Recovering/Resolving]
  - Dysgeusia [Recovering/Resolving]
  - Muscular weakness [Recovering/Resolving]
  - Dyspnoea [Recovering/Resolving]
  - Dry mouth [Recovering/Resolving]
  - Dizziness [Recovering/Resolving]
  - Vision blurred [Recovering/Resolving]
  - Myalgia [Recovering/Resolving]
  - Sensory disturbance [Recovering/Resolving]
  - Burning sensation [Recovering/Resolving]
  - Bladder discomfort [Recovering/Resolving]
  - Throat irritation [Recovering/Resolving]
  - Nausea [Recovering/Resolving]
  - Hypoaesthesia [Recovering/Resolving]
  - Arthralgia [Not Recovered/Not Resolved]

NARRATIVE: CASE EVENT DATE: 20180123
